FAERS Safety Report 18936921 (Version 1)
Quarter: 2021Q1

REPORT INFORMATION
  Report Type: Report from Study
  Country: BR (occurrence: BR)
  Receive Date: 20210224
  Receipt Date: 20210224
  Transmission Date: 20210420
  Serious: Yes (Hospitalization)
  Sender: FDA-Public Use
  Company Number: BR-ELI_LILLY_AND_COMPANY-BR201512000131

PATIENT

DRUGS (1)
  1. HUMALOG MIX [Suspect]
     Active Substance: INSULIN LISPRO
     Indication: DIABETES MELLITUS
     Dosage: UNK, UNKNOWN
     Route: 065

REACTIONS (5)
  - Musculoskeletal stiffness [Unknown]
  - Hypoaesthesia [Unknown]
  - Hypersensitivity [Recovering/Resolving]
  - Wrong technique in product usage process [Unknown]
  - Fatigue [Unknown]
